FAERS Safety Report 7568544-1 (Version None)
Quarter: 2011Q2

REPORT INFORMATION
  Report Type: 
  Country: None (occurrence: None)
  Receive Date: 20110623
  Receipt Date: 20110615
  Transmission Date: 20111010
  Serious: Yes (Life-Threatening)
  Sender: FDA-Public Use
  Company Number: JP-PFIZER INC-2011134064

PATIENT
  Age: 81 Year
  Sex: Male

DRUGS (7)
  1. URINORM [Concomitant]
     Dosage: 50 MG, 1X/DAY
     Route: 048
     Dates: end: 20110613
  2. ZOSYN [Suspect]
     Indication: PNEUMONIA
     Dosage: 4.5 G, 3X/DAY
     Route: 041
     Dates: start: 20110530, end: 20110609
  3. HERBAL PREPARATION [Suspect]
     Dosage: 7.5 G/DAY
     Route: 048
     Dates: start: 20110527, end: 20110609
  4. TAMSULOSIN HYDROCHLORIDE [Concomitant]
     Dosage: 0.2 MG, 1X/DAY
     Route: 048
     Dates: end: 20110613
  5. LEVOFLOXACIN [Suspect]
     Indication: PNEUMONIA
     Dosage: 500 MG/DAY
     Route: 048
     Dates: start: 20110530, end: 20110609
  6. NORVASC [Concomitant]
     Dosage: 2.5 MG/DAY
     Route: 048
     Dates: end: 20110613
  7. PILSICAINIDE HYDROCHLORIDE [Concomitant]
     Dosage: 50 MG/DAY
     Route: 048

REACTIONS (1)
  - INTERSTITIAL LUNG DISEASE [None]
